FAERS Safety Report 15864616 (Version 1)
Quarter: 2019Q1

REPORT INFORMATION
  Report Type: Report from Study
  Country: AR (occurrence: AR)
  Receive Date: 20190124
  Receipt Date: 20190124
  Transmission Date: 20190417
  Serious: Yes (Hospitalization, Other)
  Sender: FDA-Public Use
  Company Number: AR-BAYER-2019-016777

PATIENT
  Age: 64 Year
  Sex: Male

DRUGS (1)
  1. SORAFENIB [Suspect]
     Active Substance: SORAFENIB
     Indication: MEDULLARY THYROID CANCER
     Dosage: 800 MG DAILY
     Route: 048

REACTIONS (2)
  - Diverticulitis [None]
  - Large intestine perforation [None]
